FAERS Safety Report 7701338 (Version 4)
Quarter: 2020Q1

REPORT INFORMATION
  Report Type: Report from Study
  Country: JP (occurrence: JP)
  Receive Date: 20101209
  Receipt Date: 20200224
  Transmission Date: 20200409
  Serious: Yes (Death, Other)
  Sender: FDA-Public Use
  Company Number: JP-ALEXION-A201001538

PATIENT

DRUGS (2)
  1. BLOOD AND RELATED PRODUCTS [Concomitant]
     Active Substance: UNSPECIFIED INGREDIENT
  2. SOLIRIS [Suspect]
     Active Substance: ECULIZUMAB
     Indication: PAROXYSMAL NOCTURNAL HAEMOGLOBINURIA
     Dosage: 900 MG, Q2W
     Route: 042
     Dates: start: 20100623, end: 20101027

REACTIONS (6)
  - Brain contusion [Unknown]
  - Disseminated tuberculosis [Fatal]
  - Testicular atrophy [Unknown]
  - Aortic arteriosclerosis [Unknown]
  - Pneumonia aspiration [Unknown]
  - Prostate cancer [Unknown]

NARRATIVE: CASE EVENT DATE: 201008
